FAERS Safety Report 23667172 (Version 1)
Quarter: 2024Q1

REPORT INFORMATION
  Report Type: Spontaneous
  Country: UM (occurrence: UM)
  Receive Date: 20240325
  Receipt Date: 20240325
  Transmission Date: 20240410
  Serious: No
  Sender: FDA-Public Use
  Company Number: UM-JNJFOC-20240366536

PATIENT
  Age: 78 Year
  Sex: Female

DRUGS (1)
  1. OPSUMIT [Suspect]
     Active Substance: MACITENTAN
     Indication: Product used for unknown indication
     Dosage: TAKE 1 TABLET BY MOUTH ONCE DAILY
     Route: 048

REACTIONS (1)
  - Memory impairment [Not Recovered/Not Resolved]
